FAERS Safety Report 4579274-2 (Version None)
Quarter: 2005Q1

REPORT INFORMATION
  Report Type: 
  Country: None (occurrence: None)
  Receive Date: 20050210
  Receipt Date: 20050210
  Transmission Date: 20050727
  Serious: No
  Sender: FDA-Public Use
  Company Number: None

PATIENT
  Sex: Female
  Weight: 53.6 kg

DRUGS (3)
  1. FLUOROURACIL [Suspect]
     Dates: start: 20041206
  2. MITOMYCIN [Suspect]
  3. RADIOTHERAPY [Suspect]

REACTIONS (13)
  - ANAEMIA [None]
  - BODY TEMPERATURE INCREASED [None]
  - CYSTITIS RADIATION [None]
  - DEHYDRATION [None]
  - DYSPNOEA [None]
  - FATIGUE [None]
  - LEUKOPENIA [None]
  - NAUSEA [None]
  - NEUTROPENIA [None]
  - POLLAKIURIA [None]
  - RADIATION SKIN INJURY [None]
  - THROMBOCYTOPENIA [None]
  - VOMITING [None]
